FAERS Safety Report 4782379-4 (Version None)
Quarter: 2005Q3

REPORT INFORMATION
  Report Type: 
  Country: None (occurrence: None)
  Receive Date: 20050914
  Receipt Date: 20050706
  Transmission Date: 20060218
  Serious: Yes (Other)
  Sender: FDA-Public Use
  Company Number: 163-20785-05070124

PATIENT

DRUGS (8)
  1. THALOMID [Suspect]
     Indication: MULTIPLE MYELOMA
     Dosage: 200-400MG DAILY STARTING ON DAY 4, ORAL; SEE IMAGE
     Route: 048
     Dates: start: 20031101
  2. THALOMID [Suspect]
     Indication: MULTIPLE MYELOMA
     Dosage: 200-400MG DAILY STARTING ON DAY 4, ORAL; SEE IMAGE
     Route: 048
     Dates: start: 20031219
  3. GENASENSE [Suspect]
     Indication: MULTIPLE MYELOMA
     Dosage: 7MG/KG/DAY INDUCTION PHASE,  ON DAYS 1-7, 22-28, AND 43-49, INTRAVENOUS DRIP; SEE IMAGE
     Route: 041
     Dates: start: 20030113
  4. GENASENSE [Suspect]
     Indication: MULTIPLE MYELOMA
     Dosage: 7MG/KG/DAY INDUCTION PHASE,  ON DAYS 1-7, 22-28, AND 43-49, INTRAVENOUS DRIP; SEE IMAGE
     Route: 041
     Dates: start: 20031028
  5. GENASENSE [Suspect]
     Indication: MULTIPLE MYELOMA
     Dosage: 7MG/KG/DAY INDUCTION PHASE,  ON DAYS 1-7, 22-28, AND 43-49, INTRAVENOUS DRIP; SEE IMAGE
     Route: 041
     Dates: start: 20031118
  6. GENASENSE [Suspect]
     Indication: MULTIPLE MYELOMA
     Dosage: 7MG/KG/DAY INDUCTION PHASE,  ON DAYS 1-7, 22-28, AND 43-49, INTRAVENOUS DRIP; SEE IMAGE
     Route: 041
     Dates: start: 20031219
  7. DEXAMETHASONE [Suspect]
     Indication: MULTIPLE MYELOMA
     Dosage: 40 MG INDUCTION PHASE, DAYS 4-7, 25-28, AND 46-49, ORAL; SEE IMAGE
     Route: 048
     Dates: start: 20031101
  8. DEXAMETHASONE [Suspect]
     Indication: MULTIPLE MYELOMA
     Dosage: 40 MG INDUCTION PHASE, DAYS 4-7, 25-28, AND 46-49, ORAL; SEE IMAGE
     Route: 048
     Dates: start: 20031219

REACTIONS (1)
  - HYPOCALCAEMIA [None]
